FAERS Safety Report 26200172 (Version 1)
Quarter: 2025Q4

REPORT INFORMATION
  Report Type: Spontaneous
  Country: US (occurrence: US)
  Receive Date: 20251225
  Receipt Date: 20251225
  Transmission Date: 20260118
  Serious: No
  Sender: ELI LILLY AND COMPANY
  Company Number: US-ELI_LILLY_AND_COMPANY-US202512013289

PATIENT
  Age: 71 Year

DRUGS (2)
  1. ZEPBOUND [Suspect]
     Active Substance: TIRZEPATIDE
     Indication: Weight control
     Dosage: UNK UNK, UNKNOWN
     Route: 058
     Dates: start: 2023
  2. ZEPBOUND [Suspect]
     Active Substance: TIRZEPATIDE
     Dosage: 12.5 MG, UNKNOWN
     Route: 058

REACTIONS (2)
  - Hunger [Unknown]
  - Incorrect dose administered [Unknown]
